FAERS Safety Report 19652250 (Version 9)
Quarter: 2023Q2

REPORT INFORMATION
  Report Type: Spontaneous
  Country: CA (occurrence: CA)
  Receive Date: 20210803
  Receipt Date: 20230418
  Transmission Date: 20230721
  Serious: Yes (Other)
  Sender: FDA-Public Use
  Company Number: CA-PFIZER INC-2021908474

PATIENT
  Age: 59 Year
  Sex: Female
  Weight: 80 kg

DRUGS (19)
  1. RUXIENCE [Suspect]
     Active Substance: RITUXIMAB-PVVR
     Indication: Rheumatoid arthritis
     Dosage: 500 MG, SINGLE (500MG INTRAVENOUS X 1 DOSE FOR RETREATMENT 120 MINUTE INFUSION)
     Route: 042
     Dates: start: 20210910, end: 20210910
  2. RUXIENCE [Suspect]
     Active Substance: RITUXIMAB-PVVR
     Dosage: 1000MG, 1 DOSE
     Route: 042
     Dates: start: 20220309, end: 20220309
  3. RUXIENCE [Suspect]
     Active Substance: RITUXIMAB-PVVR
     Dosage: 1000MG, 1 DOSE
     Route: 042
     Dates: start: 20220915, end: 20220915
  4. RUXIENCE [Suspect]
     Active Substance: RITUXIMAB-PVVR
     Dosage: 1000MG, AS A SINGLE DOSE
     Route: 042
     Dates: start: 20230413
  5. ASPIRIN [Concomitant]
     Active Substance: ASPIRIN
     Dosage: 81 MG
  6. CANDESARTAN [Concomitant]
     Active Substance: CANDESARTAN
     Dosage: 4 MG
  7. CORTISONE [Concomitant]
     Active Substance: CORTISONE
     Dosage: 1 DF
  8. DOCUSATE SODIUM [Concomitant]
     Active Substance: DOCUSATE SODIUM
     Dosage: 100 MG
  9. LORAZEPAM [Concomitant]
     Active Substance: LORAZEPAM
     Dosage: 1 MG
  10. METOPROLOL [Concomitant]
     Active Substance: METOPROLOL
     Dosage: 25 MG
  11. PANTOPRAZOLE [Concomitant]
     Active Substance: PANTOPRAZOLE
     Dosage: 40 UG
  12. PREDNISONE [Concomitant]
     Active Substance: PREDNISONE
     Dosage: 1 DF
  13. PREDNISONE [Concomitant]
     Active Substance: PREDNISONE
     Dosage: 10 MG
     Route: 048
  14. PRIMIDONE [Concomitant]
     Active Substance: PRIMIDONE
     Dosage: 250 MG
  15. QUETIAPINE [Concomitant]
     Active Substance: QUETIAPINE
     Dosage: 25 MG
  16. ROSUVASTATIN [Concomitant]
     Active Substance: ROSUVASTATIN
     Dosage: 40 MG
  17. SERTRALINE [Concomitant]
     Active Substance: SERTRALINE HYDROCHLORIDE
     Dosage: 150 MG
  18. TEMAZEPAM [Concomitant]
     Active Substance: TEMAZEPAM
     Dosage: 30 MG
  19. TYLENOL ARTHRITIS PAIN [Concomitant]
     Active Substance: ACETAMINOPHEN
     Dosage: 2000 MG
     Route: 048

REACTIONS (12)
  - Rheumatoid arthritis [Unknown]
  - Ankle fracture [Unknown]
  - Shoulder fracture [Unknown]
  - Drug ineffective [Unknown]
  - COVID-19 [Unknown]
  - Fall [Unknown]
  - C-reactive protein increased [Unknown]
  - Condition aggravated [Not Recovered/Not Resolved]
  - Off label use [Unknown]
  - Off label use [Unknown]
  - Off label use [Unknown]
  - Intentional product use issue [Unknown]

NARRATIVE: CASE EVENT DATE: 20210910
